FAERS Safety Report 5676542-8 (Version None)
Quarter: 2008Q1

REPORT INFORMATION
  Report Type: 
  Country: None (occurrence: None)
  Receive Date: 20080321
  Receipt Date: 20080321
  Transmission Date: 20080703
  Serious: No
  Sender: FDA-Public Use
  Company Number: None

PATIENT
  Age: 19 Year
  Sex: Male
  Weight: 59.4212 kg

DRUGS (3)
  1. SODIUM CHLORIDE 0.9% [Suspect]
     Indication: DEHYDRATION
     Dosage: 1000 ML ONCE IV
     Route: 042
     Dates: start: 20080310
  2. SODIUM CHLORIDE 0.9% [Suspect]
     Indication: ORTHOSTATIC HYPOTENSION
     Dosage: 1000 ML ONCE IV
     Route: 042
     Dates: start: 20080310
  3. SODIUM CHLORIDE 0.9% [Suspect]
     Indication: VOMITING
     Dosage: 1000 ML ONCE IV
     Route: 042
     Dates: start: 20080310

REACTIONS (2)
  - INCORRECT ROUTE OF DRUG ADMINISTRATION [None]
  - MEDICATION ERROR [None]
